FAERS Safety Report 9565376 (Version 4)
Quarter: 2014Q3

REPORT INFORMATION
  Report Type: Spontaneous
  Country: US (occurrence: US)
  Receive Date: 20130930
  Receipt Date: 20140703
  Transmission Date: 20150326
  Serious: Yes (Other)
  Sender: FDA-Public Use
  Company Number: US-BAYER-2013-117437

PATIENT
  Age: 25 Year
  Sex: Female
  Weight: 48.53 kg

DRUGS (1)
  1. MIRENA [Suspect]
     Active Substance: LEVONORGESTREL
     Indication: CONTRACEPTION
     Dosage: 20 MCG/24HR, CONT
     Route: 015
     Dates: start: 201005

REACTIONS (10)
  - Back pain [Not Recovered/Not Resolved]
  - Device dislocation [Recovered/Resolved]
  - Thrombosis [Recovering/Resolving]
  - Abdominal pain [Not Recovered/Not Resolved]
  - Obsessive-compulsive disorder [Not Recovered/Not Resolved]
  - Nausea [None]
  - Pain [None]
  - Abdominal pain lower [Not Recovered/Not Resolved]
  - Migraine [Not Recovered/Not Resolved]
  - Chest pain [Not Recovered/Not Resolved]

NARRATIVE: CASE EVENT DATE: 2011
